FAERS Safety Report 23461751 (Version 2)
Quarter: 2024Q1

REPORT INFORMATION
  Report Type: Report from Study
  Country: CA (occurrence: CA)
  Receive Date: 20240131
  Receipt Date: 20240208
  Transmission Date: 20240409
  Serious: Yes (Hospitalization, Other)
  Sender: FDA-Public Use
  Company Number: CA-AstraZeneca-2024A017285

PATIENT
  Sex: Female
  Weight: 66.2 kg

DRUGS (2)
  1. ENHERTU [Suspect]
     Active Substance: FAM-TRASTUZUMAB DERUXTECAN-NXKI
     Indication: Breast cancer
     Dosage: 419 MG, ONCE EVERY 3 WK
     Route: 042
     Dates: start: 20231222
  2. ENHERTU [Suspect]
     Active Substance: FAM-TRASTUZUMAB DERUXTECAN-NXKI
     Dosage: 219.3 MG, ONCE EVERY 3 WK (4.4 MG/KG AT 291.28 MG)
     Route: 042
     Dates: start: 20231222

REACTIONS (8)
  - Pain in extremity [Recovered/Resolved]
  - Lymphoedema [Recovered/Resolved]
  - Nausea [Recovered/Resolved]
  - Diarrhoea [Recovered/Resolved]
  - Fatigue [Recovered/Resolved]
  - Cytopenia [Unknown]
  - Swelling [Recovered/Resolved]
  - Erythema [Recovered/Resolved]
